FAERS Safety Report 21321954 (Version 1)
Quarter: 2022Q3

REPORT INFORMATION
  Report Type: Spontaneous
  Country: US (occurrence: None)
  Receive Date: 20220909
  Receipt Date: 20220909
  Transmission Date: 20221026
  Serious: Yes (Hospitalization)
  Sender: FDA-Public Use
  Company Number: None

PATIENT
  Age: 69 Year
  Sex: Female

DRUGS (1)
  1. CAPECITABINE [Suspect]
     Active Substance: CAPECITABINE
     Dosage: 1500 BID ORAL
     Route: 048

REACTIONS (7)
  - Off label use [None]
  - Skin discolouration [None]
  - Diarrhoea [None]
  - Hepatic failure [None]
  - Dehydration [None]
  - Abdominal pain [None]
  - Fatigue [None]

NARRATIVE: CASE EVENT DATE: 20220901
